FAERS Safety Report 6120263-4 (Version None)
Quarter: 2009Q1

REPORT INFORMATION
  Report Type: 
  Country: None (occurrence: None)
  Receive Date: 20090312
  Receipt Date: 20090225
  Transmission Date: 20090719
  Serious: Yes (Death, Hospitalization)
  Sender: FDA-Public Use
  Company Number: 2009000608

PATIENT
  Age: 74 Year
  Sex: Male
  Weight: 104.3273 kg

DRUGS (4)
  1. TARCEVA [Suspect]
     Indication: NON-SMALL CELL LUNG CANCER
     Dosage: 100 MG, QD, ORAL
     Route: 048
     Dates: start: 20090101, end: 20090206
  2. LIPITOR [Concomitant]
  3. TAXOTERE [Concomitant]
  4. STEROIDS [Concomitant]

REACTIONS (9)
  - CARDIAC ARREST [None]
  - DIARRHOEA [None]
  - FALL [None]
  - FLUID OVERLOAD [None]
  - MALIGNANT NEOPLASM PROGRESSION [None]
  - NAUSEA [None]
  - NO THERAPEUTIC RESPONSE [None]
  - RENAL FAILURE [None]
  - VOMITING [None]
